FAERS Safety Report 5811005-8 (Version None)
Quarter: 2008Q3

REPORT INFORMATION
  Report Type: 
  Country: None (occurrence: None)
  Receive Date: 20080716
  Receipt Date: 20080714
  Transmission Date: 20090109
  Serious: Yes (Hospitalization)
  Sender: FDA-Public Use
  Company Number: FR-JNJFOC-20070803449

PATIENT
  Age: 82 Year
  Sex: Male

DRUGS (3)
  1. TAVANIC [Suspect]
     Indication: ERYSIPELAS
     Route: 042
  2. PREVISCAN [Suspect]
     Route: 048
  3. PREVISCAN [Suspect]
     Indication: ATRIAL FIBRILLATION
     Route: 048

REACTIONS (3)
  - ANAEMIA [None]
  - OVERDOSE [None]
  - SUBCUTANEOUS HAEMATOMA [None]
